FAERS Safety Report 9051834 (Version 3)
Quarter: 2013Q2

REPORT INFORMATION
  Report Type: Spontaneous
  Country: JP (occurrence: JP)
  Receive Date: 20130207
  Receipt Date: 20130401
  Transmission Date: 20140414
  Serious: Yes (Life-Threatening, Hospitalization, Other)
  Sender: FDA-Public Use
  Company Number: JP-009507513-1302JPN001394

PATIENT
  Age: 64 Year
  Sex: Female
  Weight: 38 kg

DRUGS (7)
  1. GLACTIV [Suspect]
     Indication: TYPE 2 DIABETES MELLITUS
     Dosage: 50 MG, UNK
     Route: 048
     Dates: start: 20121222, end: 20130106
  2. LANTUS [Concomitant]
     Dosage: UNK
     Dates: start: 20121208, end: 20130106
  3. BASEN OD [Concomitant]
  4. BIOFERMIN (BACILLUS SUBTILIS (+) LACTOBACILLUS ACIDOPHILUS (+) STREPTO [Concomitant]
     Dosage: UNK
     Dates: end: 20130106
  5. PERAPRIN [Concomitant]
     Dosage: UNK
     Dates: end: 20130106
  6. NAUZELIN [Concomitant]
     Dosage: UNK
     Dates: end: 20130106
  7. UNISIA [Concomitant]

REACTIONS (3)
  - Drug-induced liver injury [Recovering/Resolving]
  - Pneumonia [Recovering/Resolving]
  - Gastroenteritis [Recovered/Resolved]
